FAERS Safety Report 19840059 (Version 1)
Quarter: 2021Q3

REPORT INFORMATION
  Report Type: Spontaneous
  Country: HU (occurrence: HU)
  Receive Date: 20210916
  Receipt Date: 20210916
  Transmission Date: 20211014
  Serious: Yes (Disabling)
  Sender: FDA-Public Use
  Company Number: None

PATIENT
  Age: 37 Year
  Sex: Male
  Weight: 100 kg

DRUGS (5)
  1. NIDOFLOR [Suspect]
     Active Substance: NEOMYCIN\NYSTATIN\TRIAMCINOLONE
  2. TRIAMCINOLONE [Suspect]
     Active Substance: TRIAMCINOLONE
  3. ELIDEL [Suspect]
     Active Substance: PIMECROLIMUS
  4. ELOCON [Suspect]
     Active Substance: MOMETASONE FUROATE
     Indication: ECZEMA
     Dates: start: 19900101, end: 20200103
  5. FUCICORT [Suspect]
     Active Substance: BETAMETHASONE VALERATE\FUSIDIC ACID

REACTIONS (3)
  - Steroid dependence [None]
  - Steroid withdrawal syndrome [None]
  - Erythema [None]

NARRATIVE: CASE EVENT DATE: 20150107
